FAERS Safety Report 6918974-3 (Version None)
Quarter: 2010Q3

REPORT INFORMATION
  Report Type: 
  Country: None (occurrence: None)
  Receive Date: 20100811
  Receipt Date: 20100804
  Transmission Date: 20110219
  Serious: Yes (Life-Threatening)
  Sender: FDA-Public Use
  Company Number: DE-BAXTER-2010BH020935

PATIENT
  Age: 47 Year
  Sex: Female
  Weight: 60 kg

DRUGS (2)
  1. GAMMAGARD LIQUID [Suspect]
     Indication: GUILLAIN-BARRE SYNDROME
     Route: 042
     Dates: start: 20100720, end: 20100720
  2. GAMMAGARD LIQUID [Suspect]
     Indication: APHERESIS
     Route: 042
     Dates: start: 20100720, end: 20100720

REACTIONS (1)
  - ANAPHYLACTIC SHOCK [None]
